FAERS Safety Report 18674678 (Version 1)
Quarter: 2020Q4

REPORT INFORMATION
  Report Type: Report from Study
  Country: SE (occurrence: CN)
  Receive Date: 20201229
  Receipt Date: 20201229
  Transmission Date: 20210114
  Serious: Yes (Life-Threatening, Hospitalization)
  Sender: FDA-Public Use
  Company Number: CN-ELI_LILLY_AND_COMPANY-CN202012012753

PATIENT
  Age: 64 Year
  Sex: Male

DRUGS (27)
  1. PALONOSETRON. [Concomitant]
     Active Substance: PALONOSETRON HYDROCHLORIDE
     Indication: PRODUCT USED FOR UNKNOWN INDICATION
     Dosage: UNK UNK, UNKNOWN
     Route: 065
     Dates: start: 20200521
  2. RABEPRAZOLE SODIUM. [Concomitant]
     Active Substance: RABEPRAZOLE SODIUM
     Dosage: 20 MG, DAILY
     Route: 048
     Dates: start: 20200528, end: 20200528
  3. FOSAPREPITANT MEGLUMINE [Concomitant]
     Active Substance: FOSAPREPITANT
     Indication: PRODUCT USED FOR UNKNOWN INDICATION
     Dosage: UNK, UNKNOWN
     Route: 065
     Dates: start: 20200521, end: 20200521
  4. MOMETASONE [Concomitant]
     Active Substance: MOMETASONE
     Indication: CHRONIC HEPATIC FAILURE
     Dosage: 5 G, TID
     Route: 061
     Dates: start: 20200527, end: 20200528
  5. MOMETASONE [Concomitant]
     Active Substance: MOMETASONE
     Indication: RASH
  6. ONDANSETRON [Concomitant]
     Active Substance: ONDANSETRON
     Dosage: 8 UNK, UNKNOWN
     Route: 048
     Dates: start: 20200727, end: 20200727
  7. PALONOSETRON. [Concomitant]
     Active Substance: PALONOSETRON HYDROCHLORIDE
     Dosage: 225 MG, BID
     Route: 042
     Dates: start: 20200528, end: 20200528
  8. GLUCOSE [Concomitant]
     Active Substance: DEXTROSE
     Indication: PRODUCT USED FOR UNKNOWN INDICATION
     Dosage: UNK, UNKNOWN
     Route: 065
     Dates: start: 20200521
  9. GEMCITABINE HYDROCHLORIDE. [Suspect]
     Active Substance: GEMCITABINE HYDROCHLORIDE
     Indication: TRANSITIONAL CELL CANCER OF THE RENAL PELVIS AND URETER
     Dosage: 1000 MG/M2, CYCLICAL
     Route: 042
     Dates: start: 20200521, end: 20200521
  10. DURVALUMAB. [Concomitant]
     Active Substance: DURVALUMAB
     Indication: TRANSITIONAL CELL CANCER OF THE RENAL PELVIS AND URETER
     Dosage: 1500 MG, CYCLICAL
     Route: 042
     Dates: start: 20200521, end: 20200521
  11. PALONOSETRON. [Concomitant]
     Active Substance: PALONOSETRON HYDROCHLORIDE
     Dosage: 225 MG, BID
     Route: 042
     Dates: start: 20200715, end: 20200715
  12. VITAMIN C [Concomitant]
     Active Substance: ASCORBIC ACID
     Indication: PRODUCT USED FOR UNKNOWN INDICATION
     Dosage: 1000 MG, DAILY
     Route: 042
     Dates: start: 20200528, end: 20200528
  13. THIAMINE. [Concomitant]
     Active Substance: THIAMINE
     Indication: PRODUCT USED FOR UNKNOWN INDICATION
     Dosage: 225 UG, BID
     Route: 042
     Dates: start: 20200521, end: 20200521
  14. GEMCITABINE HYDROCHLORIDE. [Suspect]
     Active Substance: GEMCITABINE HYDROCHLORIDE
     Dosage: 1000 MG/M2, CYCLICAL
     Route: 042
     Dates: start: 20200528, end: 20200528
  15. GEMCITABINE HYDROCHLORIDE. [Suspect]
     Active Substance: GEMCITABINE HYDROCHLORIDE
     Dosage: UNK UNK, CYCLICAL
     Route: 042
  16. TREMELIMUMAB. [Concomitant]
     Active Substance: TREMELIMUMAB
     Indication: TRANSITIONAL CELL CANCER OF THE RENAL PELVIS AND URETER
     Dosage: 75 MG, UNKNOWN
     Route: 042
     Dates: start: 20200521, end: 20200521
  17. FOSALAN [Concomitant]
     Active Substance: ALENDRONATE SODIUM
     Indication: PRODUCT USED FOR UNKNOWN INDICATION
     Dosage: 150 MG, DAILY
     Route: 042
     Dates: start: 20200521, end: 20200521
  18. FEBUXOSTAT. [Concomitant]
     Active Substance: FEBUXOSTAT
     Indication: GOUT
     Dosage: 40 MG, UNKNOWN
     Route: 048
     Dates: start: 2008
  19. ONDANSETRON [Concomitant]
     Active Substance: ONDANSETRON
     Dosage: 20 UNK, UNKNOWN
     Route: 048
     Dates: start: 20200715, end: 20200715
  20. FOSALAN [Concomitant]
     Active Substance: ALENDRONATE SODIUM
     Dosage: 150 MG, DAILY
     Route: 042
     Dates: start: 20200715, end: 20200715
  21. SODIUM CHLORIDE. [Concomitant]
     Active Substance: SODIUM CHLORIDE
     Indication: PRODUCT USED FOR UNKNOWN INDICATION
     Dosage: UNK, UNKNOWN
     Route: 065
     Dates: start: 20200521
  22. CARBOPLATIN. [Concomitant]
     Active Substance: CARBOPLATIN
     Indication: TRANSITIONAL CELL CANCER OF THE RENAL PELVIS AND URETER
     Dosage: UNK, UNKNOWN
     Route: 042
     Dates: start: 20200521, end: 20200521
  23. ONDANSETRON [Concomitant]
     Active Substance: ONDANSETRON
     Indication: NAUSEA
     Dosage: 8 MG, UNKNOWN
     Route: 048
     Dates: start: 20200527, end: 20200527
  24. PALONOSETRON. [Concomitant]
     Active Substance: PALONOSETRON HYDROCHLORIDE
     Dosage: 225 MG, BID
     Route: 042
     Dates: start: 20200805, end: 20200805
  25. FOSALAN [Concomitant]
     Active Substance: ALENDRONATE SODIUM
     Dosage: 150 MG, DAILY
     Route: 042
     Dates: start: 20200805, end: 20200805
  26. PALONOSETRON. [Concomitant]
     Active Substance: PALONOSETRON HYDROCHLORIDE
     Dosage: 225 MG, BID
     Route: 042
     Dates: start: 20200727, end: 20200727
  27. RABEPRAZOLE SODIUM. [Concomitant]
     Active Substance: RABEPRAZOLE SODIUM
     Indication: PROTEIN TOTAL
     Dosage: 20 MG, DAILY
     Route: 042
     Dates: start: 20200521, end: 20200521

REACTIONS (1)
  - Myelosuppression [Recovered/Resolved]

NARRATIVE: CASE EVENT DATE: 20200605
